FAERS Safety Report 17547230 (Version 3)
Quarter: 2020Q4

REPORT INFORMATION
  Report Type: Spontaneous
  Country: US (occurrence: US)
  Receive Date: 20200316
  Receipt Date: 20201020
  Transmission Date: 20210113
  Serious: Yes (Death, Other)
  Sender: FDA-Public Use
  Company Number: US-TAKEDA-2020TUS014521

PATIENT

DRUGS (2)
  1. ULORIC [Suspect]
     Active Substance: FEBUXOSTAT
     Indication: GOUT
     Dosage: UNK
     Route: 048
     Dates: start: 2015
  2. ULORIC [Suspect]
     Active Substance: FEBUXOSTAT
     Dosage: UNK
     Route: 048
     Dates: start: 2005

REACTIONS (6)
  - Pulseless electrical activity [Fatal]
  - Myocardial infarction [Fatal]
  - Cardiac failure congestive [Fatal]
  - COVID-19 [Fatal]
  - Cerebrovascular accident [Fatal]
  - Heart rate irregular [Fatal]

NARRATIVE: CASE EVENT DATE: 201706
